FAERS Safety Report 5286999-2 (Version None)
Quarter: 2007Q1

REPORT INFORMATION
  Report Type: 
  Country: None (occurrence: None)
  Receive Date: 20070329
  Receipt Date: 20070323
  Transmission Date: 20070707
  Serious: Yes (Hospitalization)
  Sender: FDA-Public Use
  Company Number: 2007SP004237

PATIENT
  Age: 51 Year
  Sex: Male

DRUGS (1)
  1. VIRAFERONPEG [Suspect]
     Indication: HEPATITIS C

REACTIONS (1)
  - ALCOHOL DETOXIFICATION [None]
